FAERS Safety Report 5472263-5 (Version None)
Quarter: 2007Q3

REPORT INFORMATION
  Report Type: 
  Country: None (occurrence: None)
  Receive Date: 20070927
  Receipt Date: 20070919
  Transmission Date: 20080115
  Serious: Yes (Other)
  Sender: FDA-Public Use
  Company Number: 2007331412

PATIENT
  Sex: Male

DRUGS (2)
  1. BENADRYL [Suspect]
     Indication: COUGH
     Dosage: ORAL
     Route: 048
  2. DRUG, UNSPECIFIED (DRUG, UNSPECIFIED) [Suspect]
     Indication: ASTHMA

REACTIONS (2)
  - PSYCHOMOTOR HYPERACTIVITY [None]
  - URINARY RETENTION [None]
